FAERS Safety Report 15112238 (Version 4)
Quarter: 2018Q3

REPORT INFORMATION
  Report Type: Spontaneous
  Country: FR (occurrence: FR)
  Receive Date: 20180705
  Receipt Date: 20180924
  Transmission Date: 20181010
  Serious: Yes (Disabling, Other)
  Sender: FDA-Public Use
  Company Number: PHHY2018FR037470

PATIENT
  Age: 77 Year
  Sex: Male

DRUGS (8)
  1. VORICONAZOLE. [Suspect]
     Active Substance: VORICONAZOLE
     Dosage: 400 MG, QD
     Route: 065
  2. VORICONAZOLE. [Suspect]
     Active Substance: VORICONAZOLE
     Dosage: 100 MG, DAILY (REDUCED)
     Route: 065
  3. VORICONAZOLE. [Suspect]
     Active Substance: VORICONAZOLE
     Dosage: 400 MILLIGRAM DAILY;
     Route: 065
  4. VORICONAZOLE. [Suspect]
     Active Substance: VORICONAZOLE
     Dosage: 100 MG, QD
     Route: 065
  5. VORICONAZOLE. [Suspect]
     Active Substance: VORICONAZOLE
     Indication: BRONCHOPULMONARY ASPERGILLOSIS
     Dosage: 200 MG, BID
     Route: 065
  6. VORICONAZOLE. [Suspect]
     Active Substance: VORICONAZOLE
     Dosage: 200 MG, QD
     Route: 065
  7. VORICONAZOLE. [Suspect]
     Active Substance: VORICONAZOLE
     Dosage: 100 MILLIGRAM DAILY;
     Route: 065
  8. VORICONAZOLE. [Suspect]
     Active Substance: VORICONAZOLE
     Dosage: 200 MILLIGRAM DAILY;
     Route: 065

REACTIONS (12)
  - Photophobia [Not Recovered/Not Resolved]
  - Dyschromatopsia [Recovered/Resolved]
  - Vision blurred [Recovering/Resolving]
  - Hallucination, visual [Recovered/Resolved]
  - Visual field defect [Recovered/Resolved]
  - Macular opacity [Recovered/Resolved]
  - Xanthopsia [Recovered/Resolved]
  - Retinal toxicity [Recovering/Resolving]
  - Vision blurred [Recovered/Resolved]
  - Visual field defect [Recovering/Resolving]
  - Visual acuity reduced [Recovering/Resolving]
  - Dyschromatopsia [Recovering/Resolving]
